FAERS Safety Report 17525697 (Version 14)
Quarter: 2024Q4

REPORT INFORMATION
  Report Type: Spontaneous
  Country: DE (occurrence: DE)
  Receive Date: 20200310
  Receipt Date: 20241223
  Transmission Date: 20250114
  Serious: Yes (Death, Life-Threatening, Hospitalization, Other)
  Sender: NOVARTIS
  Company Number: None

PATIENT
  Age: 52 Year
  Sex: Female
  Weight: 52 kg

DRUGS (70)
  1. VALSARTAN [Suspect]
     Active Substance: VALSARTAN
     Indication: Systemic lupus erythematosus
     Dosage: 2 DOSAGE FORM, QD (BID 160 (1-0-1))
     Route: 065
  2. VALSARTAN [Suspect]
     Active Substance: VALSARTAN
     Dosage: UNK UNK, QD ((UNK,QD; 1X/DAY))
     Route: 065
  3. FLUVASTATIN [Suspect]
     Active Substance: FLUVASTATIN SODIUM
     Indication: Systemic lupus erythematosus
     Dosage: 1 DOSAGE FORM, QD 20 (0-0-1)
     Route: 065
  4. FLUVASTATIN [Suspect]
     Active Substance: FLUVASTATIN SODIUM
     Dosage: UNK, QD (1X/DAY)
     Route: 065
  5. FLUVASTATIN [Suspect]
     Active Substance: FLUVASTATIN SODIUM
     Dosage: UNK, QD
     Route: 065
  6. FLUVASTATIN [Suspect]
     Active Substance: FLUVASTATIN SODIUM
     Dosage: 1 DOSAGE FORM, QD
     Route: 065
  7. FLUVASTATIN [Suspect]
     Active Substance: FLUVASTATIN SODIUM
     Dosage: 1 DOSAGE FORM, QD
     Route: 065
  8. AZATHIOPRINE [Suspect]
     Active Substance: AZATHIOPRINE
     Indication: White blood cell count decreased
     Dosage: UNK
     Route: 065
     Dates: start: 1997, end: 2008
  9. AZATHIOPRINE [Suspect]
     Active Substance: AZATHIOPRINE
     Indication: Systemic lupus erythematosus
     Dosage: 50 MG
     Route: 065
     Dates: start: 20100419, end: 201904
  10. AZATHIOPRINE [Suspect]
     Active Substance: AZATHIOPRINE
     Indication: Lymphopenia
     Dosage: 50 MG
     Route: 065
     Dates: start: 201906, end: 201907
  11. PREDNISOLONE [Suspect]
     Active Substance: PREDNISOLONE
     Indication: Systemic lupus erythematosus
     Dosage: 5 MG, QD
     Route: 065
     Dates: start: 1988
  12. ACYCLOVIR [Suspect]
     Active Substance: ACYCLOVIR
     Indication: Systemic lupus erythematosus
     Dosage: 1200 MG, QD (400 MG, 3X/DAY)
     Route: 065
  13. ACYCLOVIR [Suspect]
     Active Substance: ACYCLOVIR
     Dosage: 400 MG, QD (400 MG, TID)
     Route: 065
  14. ACYCLOVIR [Suspect]
     Active Substance: ACYCLOVIR
     Dosage: 1200 MG, QD
     Route: 065
  15. ACYCLOVIR [Suspect]
     Active Substance: ACYCLOVIR
     Dosage: 1200 MG, QD (400 MG, TID)
     Route: 065
  16. ACYCLOVIR [Suspect]
     Active Substance: ACYCLOVIR
     Dosage: 400 MG, QD
     Route: 065
  17. LEVOTHYROXINE SODIUM [Suspect]
     Active Substance: LEVOTHYROXINE SODIUM
     Indication: Systemic lupus erythematosus
     Dosage: UNK
     Route: 065
  18. MORPHINE [Suspect]
     Active Substance: MORPHINE
     Indication: Systemic lupus erythematosus
     Dosage: UNK, 20 TO S5X/D,
     Route: 065
  19. MORPHINE [Suspect]
     Active Substance: MORPHINE
     Dosage: UNK, 20 TO S5X/D,
     Route: 065
  20. PENTACARINAT [Suspect]
     Active Substance: PENTAMIDINE ISETHIONATE
     Indication: Systemic lupus erythematosus
     Dosage: UNK
     Route: 055
     Dates: start: 201904
  21. BENLYSTA [Suspect]
     Active Substance: BELIMUMAB
     Indication: Systemic lupus erythematosus
     Dosage: 200 MG, QW (WE)
     Route: 058
     Dates: start: 201708, end: 201904
  22. BENLYSTA [Suspect]
     Active Substance: BELIMUMAB
     Indication: White blood cell count decreased
     Dosage: 10 MG/KG, QW (WE)
     Route: 058
     Dates: start: 201711, end: 201812
  23. BENLYSTA [Suspect]
     Active Substance: BELIMUMAB
     Dosage: 200 MG, QW (WE)
     Route: 058
     Dates: start: 201806, end: 201807
  24. MOLSIDOMINE [Suspect]
     Active Substance: MOLSIDOMINE
     Indication: Systemic lupus erythematosus
     Dosage: 1 DOSAGE FORM, QD (1 DF, QD (8 RET))
     Route: 065
  25. MOLSIDOMINE [Suspect]
     Active Substance: MOLSIDOMINE
     Dosage: UNK (UNK UNK, QD 8 RET (0-0-1))
     Route: 065
  26. DETRUSITOL [Suspect]
     Active Substance: TOLTERODINE TARTRATE
     Indication: Systemic lupus erythematosus
     Dosage: UNK
     Route: 065
  27. ELIQUIS [Suspect]
     Active Substance: APIXABAN
     Indication: Systemic lupus erythematosus
     Dosage: 2.5 MG
     Route: 065
  28. MOLSIDOMINE [Suspect]
     Active Substance: MOLSIDOMINE
     Indication: Systemic lupus erythematosus
     Dosage: 1 DF, QD (8 RET)
     Route: 065
  29. HYDROXYCHLOROQUINE [Concomitant]
     Active Substance: HYDROXYCHLOROQUINE
     Indication: Product used for unknown indication
     Dosage: 200 MG, QD
     Route: 065
     Dates: start: 1994, end: 1997
  30. HYDROXYCHLOROQUINE [Concomitant]
     Active Substance: HYDROXYCHLOROQUINE
     Indication: Product used for unknown indication
     Dosage: 200 MG, QD (1X/DAY)
     Route: 065
  31. HYDROXYCHLOROQUINE [Concomitant]
     Active Substance: HYDROXYCHLOROQUINE
     Dosage: 200 MG, QD
     Route: 065
     Dates: start: 2008
  32. HYDROXYCHLOROQUINE [Concomitant]
     Active Substance: HYDROXYCHLOROQUINE
     Dosage: 200 MG, QD
     Route: 065
  33. HYDROXYCHLOROQUINE [Concomitant]
     Active Substance: HYDROXYCHLOROQUINE
     Dosage: 200 MILLIGRAM, QD
     Route: 065
  34. HYDROXYCHLOROQUINE [Concomitant]
     Active Substance: HYDROXYCHLOROQUINE
     Dosage: 200 MILLIGRAM, QD
     Route: 065
  35. HYDROXYCHLOROQUINE [Concomitant]
     Active Substance: HYDROXYCHLOROQUINE
     Dosage: 200 MILLIGRAM, QD
     Route: 065
  36. MCP [Concomitant]
     Active Substance: METOCLOPRAMIDE HYDROCHLORIDE
     Indication: Product used for unknown indication
     Dosage: 9 DOSAGE FORM, QD (3 DF, 3X/DAY, FREQ:.33 D;3 DF, QD ( TID 10))
     Route: 065
  37. MCP [Concomitant]
     Active Substance: METOCLOPRAMIDE HYDROCHLORIDE
     Dosage: 3 DF, QD ( TID 10)
     Route: 065
  38. NITRENDIPINE [Concomitant]
     Active Substance: NITRENDIPINE
     Indication: Product used for unknown indication
     Dosage: UNK
     Route: 065
  39. NITRENDIPINE [Concomitant]
     Active Substance: NITRENDIPINE
     Indication: Product used for unknown indication
     Dosage: UNK
     Route: 065
  40. NITRENDIPINE [Concomitant]
     Active Substance: NITRENDIPINE
     Dosage: UNK
     Route: 065
  41. NITRENDIPINE [Concomitant]
     Active Substance: NITRENDIPINE
     Dosage: UNK
     Route: 065
  42. EZETIMIBE [Concomitant]
     Active Substance: EZETIMIBE
     Indication: Product used for unknown indication
     Dosage: 1 DOSAGE FORM, QD
     Route: 065
  43. EZETIMIBE [Concomitant]
     Active Substance: EZETIMIBE
     Dosage: UNK, QD ((UNK, 1X/DAY))
     Route: 065
  44. EZETIMIBE [Concomitant]
     Active Substance: EZETIMIBE
     Dosage: UNK, QD (UNK, 1X/DAY)
     Route: 065
  45. EZETIMIBE [Concomitant]
     Active Substance: EZETIMIBE
     Dosage: UNK, QD (UNK, 1X/DAY)
     Route: 065
  46. ISDN [Concomitant]
     Indication: Product used for unknown indication
     Dosage: UNK, BID
     Route: 065
  47. ISDN [Concomitant]
     Dosage: 2 DOSAGE FORM, BID (2 DF, QD (BID20 RET))
     Route: 065
  48. ISDN [Concomitant]
     Dosage: 2 DF, QD (BID20 RET)
     Route: 065
  49. ISDN [Concomitant]
     Dosage: UNK, QD (TWICE DAILY)
     Route: 065
  50. ISDN [Concomitant]
     Dosage: UNK, QD (TWICE DAILY)
     Route: 065
  51. Sab simplex [Concomitant]
     Indication: Product used for unknown indication
     Dosage: 30 GTT, TID
     Route: 065
  52. CHOLECALCIFEROL [Concomitant]
     Active Substance: CHOLECALCIFEROL
     Indication: Product used for unknown indication
     Dosage: 1 DF, QW ( WE, 20000)
     Route: 065
  53. CHOLECALCIFEROL [Concomitant]
     Active Substance: CHOLECALCIFEROL
     Dosage: UNK, QW
     Route: 065
  54. CHOLECALCIFEROL [Concomitant]
     Active Substance: CHOLECALCIFEROL
     Dosage: UNK, QW
     Route: 065
  55. UMECLIDINIUM BROMIDE\VILANTEROL TRIFENATATE [Concomitant]
     Active Substance: UMECLIDINIUM BROMIDE\VILANTEROL TRIFENATATE
     Indication: Product used for unknown indication
     Dosage: UNK, 55/221 PUSH
     Route: 055
  56. UMECLIDINIUM BROMIDE\VILANTEROL TRIFENATATE [Concomitant]
     Active Substance: UMECLIDINIUM BROMIDE\VILANTEROL TRIFENATATE
     Dosage: UNK
     Route: 055
  57. UMECLIDINIUM BROMIDE\VILANTEROL TRIFENATATE [Concomitant]
     Active Substance: UMECLIDINIUM BROMIDE\VILANTEROL TRIFENATATE
     Dosage: UNK
     Route: 055
  58. LEVOTHYROXINE SODIUM [Concomitant]
     Active Substance: LEVOTHYROXINE SODIUM
     Indication: Product used for unknown indication
     Dosage: 1 DF, QD (50)
     Route: 065
  59. LEVOTHYROXINE SODIUM [Concomitant]
     Active Substance: LEVOTHYROXINE SODIUM
     Dosage: UNK, QD (1X/DAY)
     Route: 065
  60. MORPHINE [Concomitant]
     Active Substance: MORPHINE
     Indication: Product used for unknown indication
     Dosage: 2 DF, QD (BID 30 RET)
     Route: 065
  61. MORPHINE [Concomitant]
     Active Substance: MORPHINE
     Dosage: UNK (30 2X/DAY)
     Route: 065
  62. MORPHINE [Concomitant]
     Active Substance: MORPHINE
     Dosage: UNK (30 2X/DAY)
     Route: 065
  63. DULOXETINE [Concomitant]
     Active Substance: DULOXETINE
     Indication: Product used for unknown indication
     Dosage: 1 DF, QD (30 (1-0-0)
     Route: 065
  64. DULOXETINE [Concomitant]
     Active Substance: DULOXETINE
     Dosage: 1 DOSAGE FORM, QD (UNK (30, 1X/DAY))
     Route: 065
  65. DULOXETINE [Concomitant]
     Active Substance: DULOXETINE
     Dosage: UNK UNK, QD (30, 1X/DAY)
     Route: 065
  66. DULOXETINE [Concomitant]
     Active Substance: DULOXETINE
     Dosage: UNK UNK, QD (30, 1X/DAY)
     Route: 065
  67. DULOXETINE [Concomitant]
     Active Substance: DULOXETINE
     Dosage: 1 DF, QD (30 (1-0-0), UNK (30, 1X/DAY)
     Route: 065
  68. LAXATAN M [Concomitant]
     Indication: Product used for unknown indication
     Dosage: UNK
     Route: 065
  69. LAXATAN M [Concomitant]
     Dosage: UNK
     Route: 065
  70. LAXATAN M [Concomitant]
     Dosage: UNK
     Route: 065

REACTIONS (33)
  - Peritonitis [Fatal]
  - Lymphopenia [Fatal]
  - Pneumocystis jirovecii pneumonia [Fatal]
  - Sepsis [Fatal]
  - Leukopenia [Unknown]
  - Hypothyroidism [Unknown]
  - Osteonecrosis [Unknown]
  - Gastritis haemorrhagic [Unknown]
  - Antiphospholipid syndrome [Unknown]
  - Skin disorder [Unknown]
  - Herpes simplex reactivation [Unknown]
  - Drug hypersensitivity [Unknown]
  - Pleuritic pain [Unknown]
  - Fall [Unknown]
  - Urinary tract infection [Unknown]
  - Hypertension [Unknown]
  - Antinuclear antibody negative [Unknown]
  - Gastrooesophageal reflux disease [Unknown]
  - Coombs positive haemolytic anaemia [Unknown]
  - Complex regional pain syndrome [Unknown]
  - Hyperlipidaemia [Unknown]
  - Depression [Unknown]
  - Erysipelas [Unknown]
  - Pancreatitis acute [Unknown]
  - Anxiety disorder [Unknown]
  - Thrombocytopenia [Unknown]
  - Colitis ulcerative [Unknown]
  - Systemic lupus erythematosus [Unknown]
  - Product use in unapproved indication [Unknown]
  - Intentional product use issue [Unknown]
  - Off label use [Unknown]
  - Peritonitis [Fatal]
  - Off label use [Unknown]

NARRATIVE: CASE EVENT DATE: 19900101
